FAERS Safety Report 5389848-7 (Version None)
Quarter: 2007Q3

REPORT INFORMATION
  Report Type: 
  Country: None (occurrence: None)
  Receive Date: 20070718
  Receipt Date: 20070706
  Transmission Date: 20080115
  Serious: Yes (Other)
  Sender: FDA-Public Use
  Company Number: PHNU2007DE02420

PATIENT
  Sex: Male

DRUGS (4)
  1. LEPONEX [Suspect]
     Dosage: 150 MG, BID
     Route: 048
  2. ATENOLOL [Concomitant]
     Dosage: 25 MG, BID
  3. ASPIRIN [Concomitant]
  4. ISOKET [Concomitant]

REACTIONS (1)
  - ATRIOVENTRICULAR BLOCK COMPLETE [None]
